FAERS Safety Report 8058171-4 (Version None)
Quarter: 2012Q1

REPORT INFORMATION
  Report Type: 
  Country: None (occurrence: None)
  Receive Date: 20120112
  Receipt Date: 20111230
  Transmission Date: 20120608
  Serious: Yes (Other)
  Sender: FDA-Public Use
  Company Number: US-1189646

PATIENT
  Sex: Male
  Weight: 97.0698 kg

DRUGS (6)
  1. VIGAMOX [Suspect]
     Indication: POSTOPERATIVE CARE
     Dosage: (OPHTHALMIC)
     Route: 047
     Dates: start: 20111122
  2. BSS [Suspect]
     Indication: CATARACT OPERATION
     Dosage: (INTRAOCULAR)
     Route: 031
     Dates: start: 20111122, end: 20111122
  3. NEVANAC [Suspect]
     Indication: POSTOPERATIVE CARE
     Dosage: (OPHTHALMIC)
     Route: 047
     Dates: start: 20111122
  4. PREDNISOLONE ACETATE [Suspect]
     Indication: POSTOPERATIVE CARE
     Dosage: (OPHTHALMIC)
     Dates: start: 20111122
  5. TETRACAINE POLYGYL STERILE OPHTHALMIC SOLUTION [Suspect]
     Indication: POSTOPERATIVE CARE
     Dosage: (OPHTHALMIC)
     Route: 047
     Dates: start: 20111122, end: 20111122
  6. BETADINE [Concomitant]

REACTIONS (1)
  - TOXIC ANTERIOR SEGMENT SYNDROME [None]
